FAERS Safety Report 8343882-3 (Version None)
Quarter: 2012Q2

REPORT INFORMATION
  Report Type: 
  Country: None (occurrence: None)
  Receive Date: 20120508
  Receipt Date: 20101213
  Transmission Date: 20120825
  Serious: Yes (Hospitalization, Other)
  Sender: FDA-Public Use
  Company Number: US-BAYER-201036004NA

PATIENT
  Age: 33 Year
  Sex: Female
  Weight: 54.9 kg

DRUGS (5)
  1. YAZ [Suspect]
     Indication: ORAL CONTRACEPTION
  2. XANAX [Concomitant]
     Indication: INSOMNIA
  3. YAZ [Suspect]
     Indication: MENSTRUAL DISORDER
     Dosage: UNK UNK, UNK
     Route: 048
     Dates: start: 20090513, end: 20090919
  4. NSAID'S [Concomitant]
  5. ALPRAZOLAM [Concomitant]

REACTIONS (3)
  - DYSPNOEA [None]
  - PULMONARY EMBOLISM [None]
  - CHEST PAIN [None]
